FAERS Safety Report 6152663-0 (Version None)
Quarter: 2009Q2

REPORT INFORMATION
  Report Type: 
  Country: None (occurrence: None)
  Receive Date: 20090413
  Receipt Date: 20090402
  Transmission Date: 20091009
  Serious: Yes (Life-Threatening)
  Sender: FDA-Public Use
  Company Number: FI-JNJFOC-20090400947

PATIENT
  Sex: Male

DRUGS (2)
  1. REMICADE [Suspect]
     Indication: CROHN'S DISEASE
     Route: 042
  2. ADALIMUMAB [Concomitant]
     Indication: CROHN'S DISEASE

REACTIONS (1)
  - ANAL CANCER [None]
